FAERS Safety Report 8827673 (Version 2)
Quarter: 2012Q4

REPORT INFORMATION
  Report Type: 
  Country: US (occurrence: US)
  Receive Date: 20121005
  Receipt Date: 20121105
  Transmission Date: 20130627
  Serious: Yes (Hospitalization)
  Sender: FDA-Public Use
  Company Number: PHEH2012US019367

PATIENT
  Sex: Male

DRUGS (2)
  1. EXELON PATCH [Suspect]
     Dosage: 4.6 mg, QD
     Route: 062
  2. CARVEDILOL [Concomitant]

REACTIONS (3)
  - Loss of consciousness [Recovering/Resolving]
  - Bradycardia [Recovered/Resolved]
  - Heart rate decreased [Recovered/Resolved]
